FAERS Safety Report 6414270-1 (Version None)
Quarter: 2009Q4

REPORT INFORMATION
  Report Type: 
  Country: None (occurrence: None)
  Receive Date: 20091026
  Receipt Date: 20091013
  Transmission Date: 20100525
  Serious: Yes (Other)
  Sender: FDA-Public Use
  Company Number: US-PFIZER INC-2009232691

PATIENT
  Sex: Female
  Weight: 52 kg

DRUGS (5)
  1. DEPO-PROVERA [Suspect]
     Indication: CONTRACEPTION
     Dosage: UNK
     Route: 030
     Dates: start: 19921001, end: 20010401
  2. DEPO-PROVERA [Suspect]
     Dosage: UNK
     Dates: start: 20020901, end: 20040301
  3. DEPO-PROVERA [Suspect]
     Dosage: UNK
     Dates: start: 20050601, end: 20070201
  4. VITAMINS [Concomitant]
  5. CENTRUM [Concomitant]

REACTIONS (2)
  - OSTEOPENIA [None]
  - OSTEOPOROSIS [None]
